FAERS Safety Report 20055019 (Version 1)
Quarter: 2021Q4

REPORT INFORMATION
  Report Type: Spontaneous
  Country: None (occurrence: CN)
  Receive Date: 20211110
  Receipt Date: 20211110
  Transmission Date: 20220303
  Serious: Yes (Hospitalization, Other)
  Sender: FDA-Public Use
  Company Number: CN-Avion Pharmaceuticals, LLC-2121703

PATIENT
  Age: 34 Year
  Sex: Male

DRUGS (1)
  1. GLOPERBA [Suspect]
     Active Substance: COLCHICINE
     Indication: Gout
     Route: 048

REACTIONS (13)
  - Nausea [Unknown]
  - Vomiting [Unknown]
  - Diarrhoea [Unknown]
  - Dizziness [Unknown]
  - Asthenia [Unknown]
  - Lethargy [Unknown]
  - Hyponatraemia [Unknown]
  - Muscular weakness [Unknown]
  - Dyspnoea [Unknown]
  - Tachycardia [Unknown]
  - Hypotension [Unknown]
  - Respiratory failure [Unknown]
  - Quadriparesis [Unknown]
